FAERS Safety Report 7442407-4 (Version None)
Quarter: 2011Q2

REPORT INFORMATION
  Report Type: 
  Country: None (occurrence: None)
  Receive Date: 20110426
  Receipt Date: 20110426
  Transmission Date: 20111010
  Serious: No
  Sender: FDA-Public Use
  Company Number: None

PATIENT
  Age: 85 Year
  Sex: Male
  Weight: 72.5755 kg

DRUGS (1)
  1. CATAPRES [Suspect]
     Indication: HYPERTENSION
     Dosage: 0.3MG PATCH CHANGED WEEKLY TRANSDERMAL
     Route: 062
     Dates: start: 20080520, end: 20110423

REACTIONS (3)
  - PRODUCT PACKAGING ISSUE [None]
  - WRONG TECHNIQUE IN DRUG USAGE PROCESS [None]
  - MEDICATION ERROR [None]
